FAERS Safety Report 11271838 (Version 1)
Quarter: 2015Q3

REPORT INFORMATION
  Report Type: Report from Study
  Country: US (occurrence: US)
  Receive Date: 20150715
  Receipt Date: 20150715
  Transmission Date: 20151125
  Serious: Yes (Other)
  Sender: FDA-Public Use
  Company Number: US-ROCHE-1607155

PATIENT

DRUGS (2)
  1. GM-CSF [Suspect]
     Active Substance: GRANULOCYTE-MACROPHAGE COLONY-STIMULATING FACTOR
     Indication: CHRONIC LYMPHOCYTIC LEUKAEMIA
     Dosage: ON 1, 3 AND 5 OF EACH WEEK FOR 8 CONSECUTIVE WEEKS
     Route: 058
  2. RITUXIMAB [Suspect]
     Active Substance: RITUXIMAB
     Indication: CHRONIC LYMPHOCYTIC LEUKAEMIA
     Dosage: ON DAY 4, AND CONTINUED WEEKLY FOR 4 CONSECUTIVE WEEKS
     Route: 042

REACTIONS (3)
  - Haematotoxicity [Unknown]
  - Bone marrow failure [Unknown]
  - Infection [Unknown]
